FAERS Safety Report 16078524 (Version 3)
Quarter: 2019Q2

REPORT INFORMATION
  Report Type: Report from Study
  Country: FR (occurrence: FR)
  Receive Date: 20190315
  Receipt Date: 20190408
  Transmission Date: 20190711
  Serious: Yes (Hospitalization)
  Sender: FDA-Public Use
  Company Number: FR-PFIZER INC-2019106032

PATIENT
  Age: 83 Year
  Sex: Female
  Weight: 46.6 kg

DRUGS (3)
  1. VIDAZA [Suspect]
     Active Substance: AZACITIDINE
     Indication: ACUTE MYELOID LEUKAEMIA
     Dosage: 105 MG, FOR 7 DAYS EVERY 28 DAYS
     Route: 058
     Dates: start: 20180828
  2. PF-04449913 [Suspect]
     Active Substance: GLASDEGIB
     Indication: ACUTE MYELOID LEUKAEMIA
     Dosage: UNK
     Route: 048
     Dates: start: 20180828
  3. PF-04449913 [Suspect]
     Active Substance: GLASDEGIB
     Dosage: 75 MG, 1X/DAY
     Route: 048
     Dates: start: 20181228

REACTIONS (1)
  - General physical health deterioration [Recovered/Resolved]

NARRATIVE: CASE EVENT DATE: 20190305
